FAERS Safety Report 15771305 (Version 4)
Quarter: 2019Q1

REPORT INFORMATION
  Report Type: Spontaneous
  Country: US (occurrence: US)
  Receive Date: 20181228
  Receipt Date: 20190111
  Transmission Date: 20190417
  Serious: Yes (Other)
  Sender: FDA-Public Use
  Company Number: US-PFIZER INC-2018531812

PATIENT
  Age: 62 Year
  Sex: Female

DRUGS (1)
  1. ATORVASTATIN CALCIUM. [Suspect]
     Active Substance: ATORVASTATIN CALCIUM
     Dosage: 80 MG, UNK

REACTIONS (3)
  - Product substitution issue [Unknown]
  - Drug ineffective [Unknown]
  - Myocardial infarction [Unknown]
